FAERS Safety Report 21273173 (Version 7)
Quarter: 2023Q1

REPORT INFORMATION
  Report Type: Report from Study
  Country: US (occurrence: US)
  Receive Date: 20220831
  Receipt Date: 20230212
  Transmission Date: 20230417
  Serious: No
  Sender: FDA-Public Use
  Company Number: US-NOVARTISTESTPH-NVSC2022US195264

PATIENT
  Sex: Female

DRUGS (2)
  1. ENTRESTO [Suspect]
     Active Substance: SACUBITRIL\VALSARTAN
     Indication: Product used for unknown indication
     Dosage: 50 MG, BID (CONTAINS 24.3 MG SACUBITRIL AND 25.7 MG VALSARTAN)
     Route: 048
  2. ENTRESTO [Suspect]
     Active Substance: SACUBITRIL\VALSARTAN
     Dosage: 1 DOSAGE FORM, (49/51 MG), (CONTAINS 48.6 MG SACUBITRIL AND 51.4 MG VALSARTAN), BID
     Route: 048

REACTIONS (6)
  - Dyspnoea [Recovered/Resolved]
  - Extrasystoles [Unknown]
  - Blood pressure increased [Recovering/Resolving]
  - Malaise [Unknown]
  - Arthralgia [Unknown]
  - Fall [Unknown]
